FAERS Safety Report 8456342-6 (Version None)
Quarter: 2012Q2

REPORT INFORMATION
  Report Type: 
  Country: None (occurrence: None)
  Receive Date: 20120621
  Receipt Date: 20120611
  Transmission Date: 20120825
  Serious: Yes (Death)
  Sender: FDA-Public Use
  Company Number: US-GLAXOSMITHKLINE-A0981047A

PATIENT
  Age: 81 Year
  Sex: Male

DRUGS (1)
  1. HYCAMTIN [Suspect]
     Indication: BRONCHIAL CARCINOMA
     Dosage: 5MG PER DAY
     Route: 048
     Dates: start: 20120601, end: 20120605

REACTIONS (2)
  - DEATH [None]
  - ORAL CANDIDIASIS [None]
